FAERS Safety Report 9920775 (Version 1)
Quarter: 2014Q1

REPORT INFORMATION
  Report Type: Spontaneous
  Country: US (occurrence: US)
  Receive Date: 20140224
  Receipt Date: 20140224
  Transmission Date: 20141002
  Serious: Yes (Hospitalization)
  Sender: FDA-Public Use
  Company Number: US-B.I. PHARMACEUTICALS,INC./RIDGEFIELD-2014-BI-07300BP

PATIENT
  Age: 53 Year
  Sex: Female

DRUGS (5)
  1. SPIRIVA [Suspect]
     Indication: CHRONIC OBSTRUCTIVE PULMONARY DISEASE
     Dosage: 1 PUF
     Route: 055
     Dates: start: 2010, end: 2013
  2. ADVAIR [Suspect]
     Indication: CHRONIC OBSTRUCTIVE PULMONARY DISEASE
     Dosage: 2 PUF
     Route: 055
     Dates: start: 2008, end: 2013
  3. ADVAIR [Suspect]
     Indication: EMPHYSEMA
  4. LEVOSALBUTAMOL [Concomitant]
     Route: 065
  5. VANLAFAXINE HYDROCHLORIDE [Concomitant]
     Route: 065

REACTIONS (9)
  - Lung neoplasm malignant [Recovered/Resolved]
  - Lung operation [Unknown]
  - Atelectasis [Unknown]
  - Biopsy lung [Recovered/Resolved]
  - Computerised tomogram abnormal [Recovered/Resolved]
  - Dyspnoea [Not Recovered/Not Resolved]
  - Oral candidiasis [Unknown]
  - Drug administration error [Unknown]
  - Feeling abnormal [Unknown]
